FAERS Safety Report 23778475 (Version 2)
Quarter: 2024Q3

REPORT INFORMATION
  Report Type: Report from Study
  Country: ZA (occurrence: ZA)
  Receive Date: 20240424
  Receipt Date: 20240701
  Transmission Date: 20241017
  Serious: Yes (Hospitalization)
  Sender: TAKEDA
  Company Number: ZA-TAKEDA-2023TUS004300

PATIENT
  Sex: Female

DRUGS (1)
  1. VEDOLIZUMAB [Suspect]
     Active Substance: VEDOLIZUMAB
     Indication: Colitis ulcerative
     Dosage: 300 MILLIGRAM
     Route: 042
     Dates: start: 20221122

REACTIONS (4)
  - Hospitalisation [Unknown]
  - Inappropriate schedule of product administration [Unknown]
  - No adverse event [Unknown]
  - Off label use [Unknown]
